FAERS Safety Report 12456999 (Version 2)
Quarter: 2016Q2

REPORT INFORMATION
  Report Type: Spontaneous
  Country: JP (occurrence: JP)
  Receive Date: 20160610
  Receipt Date: 20160610
  Transmission Date: 20160815
  Serious: Yes (Hospitalization, Other)
  Sender: FDA-Public Use
  Company Number: JP-ACTAVIS-2016-11953

PATIENT
  Age: 19 Year
  Sex: Male

DRUGS (8)
  1. EPIRUBICIN (UNKNOWN) [Suspect]
     Active Substance: EPIRUBICIN
     Indication: LYMPHOCYTIC LEUKAEMIA
     Dosage: UNK
     Route: 065
  2. CYTOSINE ARABINOSIDE [Suspect]
     Active Substance: CYTARABINE
     Indication: LYMPHOCYTIC LEUKAEMIA
     Dosage: UNK
     Route: 065
  3. METHOTREXATE (METHOTREXATE SODIUM) [Suspect]
     Active Substance: METHOTREXATE SODIUM
     Indication: LYMPHOCYTIC LEUKAEMIA
     Dosage: UNK
     Route: 065
  4. PIRARUBICIN [Suspect]
     Active Substance: PIRARUBICIN
     Indication: LYMPHOCYTIC LEUKAEMIA
     Dosage: UNK
     Route: 065
  5. VINCRISTINE (UNKNOWN) [Suspect]
     Active Substance: VINCRISTINE
     Indication: LYMPHOCYTIC LEUKAEMIA
     Dosage: UNK
     Route: 065
  6. CYCLOPHOSPHAMIDE. [Suspect]
     Active Substance: CYCLOPHOSPHAMIDE
     Indication: LYMPHOCYTIC LEUKAEMIA
     Dosage: UNK
     Route: 065
  7. ETOPOSIDE (UNKNOWN) [Suspect]
     Active Substance: ETOPOSIDE
     Indication: LYMPHOCYTIC LEUKAEMIA
     Dosage: UNK
     Route: 065
  8. CYTARABINE (UNKNOWN) [Suspect]
     Active Substance: CYTARABINE
     Indication: LYMPHOCYTIC LEUKAEMIA
     Dosage: UNK
     Route: 065

REACTIONS (2)
  - Lung transplant [Recovering/Resolving]
  - Pulmonary fibrosis [Recovering/Resolving]
